FAERS Safety Report 13106819 (Version 1)
Quarter: 2017Q1

REPORT INFORMATION
  Report Type: Report from Study
  Country: FR (occurrence: FR)
  Receive Date: 20170111
  Receipt Date: 20170111
  Transmission Date: 20170428
  Serious: Yes (Hospitalization, Other)
  Sender: FDA-Public Use
  Company Number: FR-BRISTOL-MYERS SQUIBB COMPANY-BMS-2016-096655

PATIENT
  Age: 50 Year
  Sex: Female
  Weight: 51 kg

DRUGS (14)
  1. LANZOPRAZOL [Concomitant]
     Active Substance: LANSOPRAZOLE
     Indication: PRODUCT USED FOR UNKNOWN INDICATION
     Dosage: 15 MG, UNK
     Route: 065
     Dates: start: 20160501
  2. VITAMIN A                          /00056001/ [Concomitant]
     Active Substance: RETINOL
     Indication: PRODUCT USED FOR UNKNOWN INDICATION
     Route: 065
  3. LEXOMIL [Concomitant]
     Active Substance: BROMAZEPAM
     Indication: PRODUCT USED FOR UNKNOWN INDICATION
     Dosage: 6 MG, UNK
     Route: 065
     Dates: start: 20110101
  4. OXAZEPAM. [Concomitant]
     Active Substance: OXAZEPAM
     Indication: PRODUCT USED FOR UNKNOWN INDICATION
     Dosage: 10 MG, UNK
     Route: 065
     Dates: start: 20161028
  5. ACETYLSALICYLIC ACID [Concomitant]
     Active Substance: ASPIRIN
     Indication: PRODUCT USED FOR UNKNOWN INDICATION
     Dosage: 2000 MG, UNK
     Route: 065
     Dates: start: 20161106, end: 20161109
  6. XYZAL [Concomitant]
     Active Substance: LEVOCETIRIZINE DIHYDROCHLORIDE
     Indication: PRODUCT USED FOR UNKNOWN INDICATION
     Dosage: 5 MG, UNK
     Route: 065
     Dates: start: 19960101
  7. DOLIPRANE [Concomitant]
     Active Substance: ACETAMINOPHEN
     Indication: PRODUCT USED FOR UNKNOWN INDICATION
     Dosage: 1000 MG, UNK
     Route: 065
     Dates: start: 20160501, end: 20161028
  8. PROPRANOLOL [Concomitant]
     Active Substance: PROPRANOLOL HYDROCHLORIDE
     Indication: PRODUCT USED FOR UNKNOWN INDICATION
     Dosage: 20 MG, UNK
     Route: 065
     Dates: start: 20161028
  9. HAWTHORN                           /01349301/ [Concomitant]
     Active Substance: HAWTHORN LEAF WITH FLOWER
     Indication: PRODUCT USED FOR UNKNOWN INDICATION
     Dosage: 4 OTHER(HARD PILLS), UNK
     Route: 065
     Dates: start: 20130101
  10. SMECTA [Concomitant]
     Active Substance: MONTMORILLONITE
     Indication: PRODUCT USED FOR UNKNOWN INDICATION
     Dosage: 6 MG, UNK
     Route: 065
  11. NIVOLUMAB [Suspect]
     Active Substance: NIVOLUMAB
     Indication: METASTATIC MALIGNANT MELANOMA
     Dosage: 1 DF, Q3WK
     Route: 042
     Dates: start: 20161006, end: 20161116
  12. MELATONIN [Concomitant]
     Active Substance: MELATONIN
     Indication: PRODUCT USED FOR UNKNOWN INDICATION
     Dosage: 1 TAB, UNK
     Route: 065
     Dates: start: 20110101
  13. IPILIMUMAB [Suspect]
     Active Substance: IPILIMUMAB
     Indication: METASTATIC MALIGNANT MELANOMA
     Dosage: 1 DF, Q3WK
     Route: 042
     Dates: start: 20161006, end: 20161116
  14. TOBREX [Concomitant]
     Active Substance: TOBRAMYCIN
     Indication: PRODUCT USED FOR UNKNOWN INDICATION
     Dosage: 5 MG, UNK
     Route: 065
     Dates: start: 19960101

REACTIONS (3)
  - Diarrhoea [Not Recovered/Not Resolved]
  - Colitis [Not Recovered/Not Resolved]
  - Keratitis [Recovering/Resolving]

NARRATIVE: CASE EVENT DATE: 20161029
